FAERS Safety Report 4342715-X (Version None)
Quarter: 2004Q2

REPORT INFORMATION
  Report Type: 
  Country: None (occurrence: None)
  Receive Date: 20040416
  Receipt Date: 20040331
  Transmission Date: 20050107
  Serious: Yes (Hospitalization, Other)
  Sender: FDA-Public Use
  Company Number: 235039

PATIENT
  Sex: Male
  Weight: 3.7 kg

DRUGS (3)
  1. ACTRAPID PEFILL HM (GE) 3 ML (ACTRAPID PENFILL HM (GE) 3 ML) (INSULIN [Suspect]
     Indication: DIABETES MELLITUS INSULIN-DEPENDENT
     Dosage: 66 IU, QD, INTRAUTERINE
     Route: 015
     Dates: start: 20030701
  2. INSULTARD PENFILL (INSULIN HUMAN) [Concomitant]
  3. GRAVITAMON (VITAMINS NOS) [Concomitant]

REACTIONS (2)
  - HYPOGLYCAEMIA NEONATAL [None]
  - MATERNAL DRUGS AFFECTING FOETUS [None]
